FAERS Safety Report 9660045 (Version 1)
Quarter: 2013Q4

REPORT INFORMATION
  Report Type: Spontaneous
  Country: US (occurrence: US)
  Receive Date: 20131031
  Receipt Date: 20131031
  Transmission Date: 20140711
  Serious: No
  Sender: FDA-Public Use
  Company Number: US-ABBVIE-13P-163-1077380-00

PATIENT
  Age: 57 Year
  Sex: Female
  Weight: 81.72 kg

DRUGS (5)
  1. BIAXIN [Suspect]
     Indication: BRONCHITIS
     Dates: start: 20130409, end: 20130412
  2. BIAXIN [Suspect]
     Indication: SINUSITIS
  3. BIAXIN [Suspect]
     Indication: PHARYNGITIS STREPTOCOCCAL
  4. ATENOLOL [Concomitant]
     Indication: HEART RATE IRREGULAR
  5. ELAVIL [Concomitant]
     Indication: INSOMNIA

REACTIONS (4)
  - Pain [Not Recovered/Not Resolved]
  - Tremor [Recovered/Resolved]
  - Nightmare [Recovered/Resolved]
  - Glossodynia [Not Recovered/Not Resolved]
